FAERS Safety Report 5820221-0 (Version None)
Quarter: 2008Q3

REPORT INFORMATION
  Report Type: 
  Country: None (occurrence: None)
  Receive Date: 20080724
  Receipt Date: 20080723
  Transmission Date: 20090109
  Serious: Yes (Hospitalization)
  Sender: FDA-Public Use
  Company Number: PHEH1999US00634

PATIENT
  Sex: Male
  Weight: 66.7 kg

DRUGS (15)
  1. RAD 666 RAD+ [Suspect]
     Dosage: 0.75 MG, BID
     Route: 048
     Dates: start: 19981207, end: 19990130
  2. NEORAL [Suspect]
     Route: 048
     Dates: start: 19990126
  3. DELTASONE [Suspect]
     Dosage: UNKNOWN
  4. FUROSEMIDE [Concomitant]
  5. PEPCID [Concomitant]
  6. INSULIN [Concomitant]
  7. IRON [Concomitant]
  8. NYSTATIN [Concomitant]
  9. TENORMIN [Concomitant]
  10. BACTRIM DS [Concomitant]
  11. POTASSIUM CHLORIDE [Concomitant]
  12. CLONIDINE [Concomitant]
  13. AMLODIPINE [Concomitant]
  14. MINOXIDIL [Concomitant]
  15. MICRONASE [Concomitant]

REACTIONS (1)
  - FUNGAL INFECTION [None]
